FAERS Safety Report 10204224 (Version 2)
Quarter: 2014Q2

REPORT INFORMATION
  Report Type: Spontaneous
  Country: ZA (occurrence: ZA)
  Receive Date: 20140529
  Receipt Date: 20140529
  Transmission Date: 20141212
  Serious: Yes (Disabling, Other)
  Sender: FDA-Public Use
  Company Number: ZA-009507513-1404ZAF015248

PATIENT
  Age: 54 Year
  Sex: Female
  Weight: 73.4 kg

DRUGS (1)
  1. FOSAVANCE [Suspect]
     Indication: OSTEOPOROSIS
     Dosage: 70 MG WEEKLY
     Route: 048
     Dates: start: 20140331, end: 20140407

REACTIONS (4)
  - Myalgia [Recovered/Resolved]
  - Uveitis [Recovered/Resolved]
  - Gastroenteritis [Recovered/Resolved]
  - Influenza like illness [Recovered/Resolved]
